FAERS Safety Report 19235954 (Version 1)
Quarter: 2021Q2

REPORT INFORMATION
  Report Type: Spontaneous
  Country: DE (occurrence: DE)
  Receive Date: 20210510
  Receipt Date: 20210510
  Transmission Date: 20210717
  Serious: Yes (Other)
  Sender: FDA-Public Use
  Company Number: DE-CELLTRION INC.-2021DE006174

PATIENT

DRUGS (14)
  1. PREDNISOLONE. [Suspect]
     Active Substance: PREDNISOLONE
     Dosage: TAPERING DOSE
  2. RITUXIMAB (UNKNOWN) [Suspect]
     Active Substance: RITUXIMAB
     Indication: STEM CELL TRANSPLANT
     Dosage: STARTING DAY 87 POST HSCT, 375 MG/M2/DOSE, TOTAL OF WEEKLY 6 DOSES
  3. CYCLOSPORINE A [Concomitant]
     Active Substance: CYCLOSPORINE
     Indication: GRAFT VERSUS HOST DISEASE
  4. PREDNISOLONE. [Suspect]
     Active Substance: PREDNISOLONE
     Indication: IMMUNE THROMBOCYTOPENIA
     Dosage: 2 MG/KG/DAY
  5. RITUXIMAB (UNKNOWN) [Suspect]
     Active Substance: RITUXIMAB
     Indication: IMMUNE-MEDIATED CYTOPENIA
  6. IVIG [Suspect]
     Active Substance: HUMAN IMMUNOGLOBULIN G
     Indication: STEM CELL TRANSPLANT
     Dosage: 1 G/KG/DOSE COMBINATION WITH RITUXIMAB
  7. ECULIZUMAB [Concomitant]
     Active Substance: ECULIZUMAB
     Indication: SALVAGE THERAPY
     Dosage: 25 MG/KG
  8. IVIG [Suspect]
     Active Substance: HUMAN IMMUNOGLOBULIN G
     Indication: IMMUNE-MEDIATED CYTOPENIA
     Dosage: 3 DOSES 1 G/KG/DAY AS SALVAGE THERAPY
  9. METHYLPREDNISOLONE. [Concomitant]
     Active Substance: METHYLPREDNISOLONE
     Indication: SALVAGE THERAPY
     Dosage: PULSES 20 MG/KG/DAY FOR 3 DAYS
  10. DARATUMUMAB [Suspect]
     Active Substance: DARATUMUMAB
     Indication: STEM CELL TRANSPLANT
     Dosage: 16 MG/KG/DOSE
  11. IVIG [Suspect]
     Active Substance: HUMAN IMMUNOGLOBULIN G
     Indication: IMMUNE THROMBOCYTOPENIA
     Dosage: 0.4 G/KG/DAY
     Route: 042
  12. PREDNISOLONE. [Suspect]
     Active Substance: PREDNISOLONE
     Dosage: INCREASED TO 2MG/KG
  13. IVIG [Suspect]
     Active Substance: HUMAN IMMUNOGLOBULIN G
     Indication: SALVAGE THERAPY
  14. DARATUMUMAB [Suspect]
     Active Substance: DARATUMUMAB
     Indication: IMMUNE-MEDIATED CYTOPENIA

REACTIONS (2)
  - Off label use [Unknown]
  - Haemolysis [Unknown]
